FAERS Safety Report 18657107 (Version 2)
Quarter: 2021Q1

REPORT INFORMATION
  Report Type: Spontaneous
  Country: CO (occurrence: CO)
  Receive Date: 20201224
  Receipt Date: 20210101
  Transmission Date: 20210419
  Serious: Yes (Other)
  Sender: FDA-Public Use
  Company Number: CO-EMD SERONO-9206868

PATIENT
  Age: 80 Year
  Sex: Male
  Weight: 56 kg

DRUGS (13)
  1. JADENU [Suspect]
     Active Substance: DEFERASIROX
     Route: 048
  2. LOSARTAN. [Concomitant]
     Active Substance: LOSARTAN
     Indication: HYPERTENSION
     Route: 048
  3. LEVOTHYROXINE. [Concomitant]
     Active Substance: LEVOTHYROXINE
     Indication: PRODUCT USED FOR UNKNOWN INDICATION
  4. AMITRIPTYLINE [Concomitant]
     Active Substance: AMITRIPTYLINE
     Indication: PRODUCT USED FOR UNKNOWN INDICATION
  5. JADENU [Suspect]
     Active Substance: DEFERASIROX
     Route: 048
  6. JADENU [Suspect]
     Active Substance: DEFERASIROX
     Dosage: 2 TABLETS OF 360 MG
     Route: 048
  7. BISACODYL. [Concomitant]
     Active Substance: BISACODYL
     Indication: PRODUCT USED FOR UNKNOWN INDICATION
  8. METFORMIN [Suspect]
     Active Substance: METFORMIN HYDROCHLORIDE
     Indication: DIABETES MELLITUS
  9. AZACITIDINE. [Concomitant]
     Active Substance: AZACITIDINE
     Indication: THALASSAEMIA
     Dates: start: 201911
  10. FUROSEMIDE. [Concomitant]
     Active Substance: FUROSEMIDE
     Indication: PRODUCT USED FOR UNKNOWN INDICATION
  11. JADENU [Suspect]
     Active Substance: DEFERASIROX
     Route: 048
  12. JADENU [Suspect]
     Active Substance: DEFERASIROX
     Indication: THALASSAEMIA
     Route: 048
  13. ATORVASTATIN [Concomitant]
     Active Substance: ATORVASTATIN
     Indication: PRODUCT USED FOR UNKNOWN INDICATION
     Route: 048

REACTIONS (7)
  - Myelodysplastic syndrome [Unknown]
  - Blood iron increased [Unknown]
  - Diarrhoea [Recovered/Resolved]
  - Deafness [Unknown]
  - Discouragement [Unknown]
  - Anorectal discomfort [Unknown]
  - Abdominal pain upper [Recovered/Resolved]
